FAERS Safety Report 10064630 (Version 1)
Quarter: 2014Q2

REPORT INFORMATION
  Report Type: Spontaneous
  Country: US (occurrence: None)
  Receive Date: 20140407
  Receipt Date: 20140407
  Transmission Date: 20141212
  Serious: Yes (Other)
  Sender: FDA-Public Use
  Company Number: None

PATIENT
  Age: 53 Year
  Sex: Female
  Weight: 58.97 kg

DRUGS (2)
  1. AMBIEN [Suspect]
     Indication: INSOMNIA
     Dosage: 1 PILL AT BEDTIME, TAKEN BY MOUTH
     Route: 048
     Dates: start: 20130831, end: 20140206
  2. AMBIEN [Suspect]
     Indication: ANXIETY
     Dosage: 1 PILL AT BEDTIME, TAKEN BY MOUTH
     Route: 048
     Dates: start: 20130831, end: 20140206

REACTIONS (3)
  - Aggression [None]
  - Somnambulism [None]
  - Verbal abuse [None]
